FAERS Safety Report 6061883-5 (Version None)
Quarter: 2009Q1

REPORT INFORMATION
  Report Type: 
  Country: None (occurrence: None)
  Receive Date: 20090202
  Receipt Date: 20090121
  Transmission Date: 20090719
  Serious: Yes (Other)
  Sender: FDA-Public Use
  Company Number: PHHY2009GB01315

PATIENT
  Sex: Male

DRUGS (2)
  1. CLOZARIL [Suspect]
     Indication: SCHIZOPHRENIA
     Dosage: UNK
     Dates: start: 20081210, end: 20090109
  2. QUETIAPINE FUMARATE [Concomitant]
     Indication: SCHIZOPHRENIA

REACTIONS (3)
  - ASTHENIA [None]
  - OESOPHAGEAL CARCINOMA [None]
  - TERMINAL STATE [None]
